FAERS Safety Report 14279731 (Version 1)
Quarter: 2017Q4

REPORT INFORMATION
  Report Type: Report from Study
  Country: US (occurrence: US)
  Receive Date: 20171213
  Receipt Date: 20171213
  Transmission Date: 20180321
  Serious: Yes (Other)
  Sender: FDA-Public Use
  Company Number: US-GILEAD-2017-0306880

PATIENT
  Age: 61 Year
  Sex: Male

DRUGS (1)
  1. IDELALISIB [Suspect]
     Active Substance: IDELALISIB
     Indication: B-CELL LYMPHOMA
     Dosage: 150 MG, BID
     Route: 065
     Dates: start: 20170717

REACTIONS (3)
  - B-cell lymphoma [Not Recovered/Not Resolved]
  - Tooth abscess [Unknown]
  - Biopsy bone [Recovered/Resolved]

NARRATIVE: CASE EVENT DATE: 20171121
